FAERS Safety Report 7931056-7 (Version None)
Quarter: 2011Q4

REPORT INFORMATION
  Report Type: 
  Country: None (occurrence: None)
  Receive Date: 20111121
  Receipt Date: 20111114
  Transmission Date: 20120403
  Serious: Yes (Death, Hospitalization)
  Sender: FDA-Public Use
  Company Number: SK-CELGENEUS-260-21880-11103134

PATIENT
  Age: 67 Year
  Sex: Female

DRUGS (1)
  1. REVLIMID [Suspect]
     Indication: MULTIPLE MYELOMA
     Dosage: TOTAL DOSE: 7-9 CAPSULES
     Route: 048

REACTIONS (3)
  - BRONCHOPNEUMONIA [None]
  - RENAL FAILURE [None]
  - GASTROENTERITIS [None]
